FAERS Safety Report 6133378-1 (Version None)
Quarter: 2009Q1

REPORT INFORMATION
  Report Type: 
  Country: None (occurrence: None)
  Receive Date: 20090325
  Receipt Date: 20090325
  Transmission Date: 20090719
  Serious: Yes (Hospitalization)
  Sender: FDA-Public Use
  Company Number: None

PATIENT
  Age: 78 Year
  Sex: Male
  Weight: 75.3 kg

DRUGS (1)
  1. HEPARIN [Suspect]
     Dosage: 5000 UNITS TID SQ
     Dates: start: 20081015, end: 20081102

REACTIONS (1)
  - HEPARIN-INDUCED THROMBOCYTOPENIA [None]
